FAERS Safety Report 5709170-6 (Version None)
Quarter: 2008Q2

REPORT INFORMATION
  Report Type: 
  Country: None (occurrence: None)
  Receive Date: 20080418
  Receipt Date: 20080414
  Transmission Date: 20081010
  Serious: Yes (Hospitalization, Other)
  Sender: FDA-Public Use
  Company Number: AU-AVENTIS-200813347GDDC

PATIENT
  Age: 76 Year
  Sex: Male

DRUGS (5)
  1. LANTUS [Suspect]
     Route: 058
     Dates: start: 20061101
  2. AUTOPEN INSULIN INJECTION PEN [Suspect]
     Route: 058
  3. AMOXIL [Concomitant]
  4. PANTOPRAZOLE SODIUM [Concomitant]
  5. UNKNOWN DRUG [Concomitant]

REACTIONS (2)
  - CHOLECYSTITIS INFECTIVE [None]
  - HYPOGLYCAEMIA [None]
